FAERS Safety Report 21508735 (Version 2)
Quarter: 2022Q4

REPORT INFORMATION
  Report Type: Spontaneous
  Country: SE (occurrence: SE)
  Receive Date: 20221026
  Receipt Date: 20221129
  Transmission Date: 20230113
  Serious: No
  Sender: FDA-Public Use
  Company Number: SE-PFIZER INC-202201199260

PATIENT
  Age: 75 Year
  Sex: Female

DRUGS (1)
  1. ESTRADIOL [Suspect]
     Active Substance: ESTRADIOL
     Indication: Mucosal dryness
     Dosage: UNK
     Route: 067
     Dates: start: 2020

REACTIONS (1)
  - Drug ineffective [Unknown]
